FAERS Safety Report 7688225-3 (Version None)
Quarter: 2011Q3

REPORT INFORMATION
  Report Type: 
  Country: None (occurrence: None)
  Receive Date: 20110817
  Receipt Date: 20110621
  Transmission Date: 20111222
  Serious: No
  Sender: FDA-Public Use
  Company Number: US-GLAXOSMITHKLINE-A0933326A

PATIENT
  Sex: Male

DRUGS (1)
  1. VOTRIENT [Suspect]
     Indication: PRODUCT USED FOR UNKNOWN INDICATION
     Dosage: 800MG PER DAY
     Route: 048
     Dates: start: 20110614, end: 20110601

REACTIONS (7)
  - HAEMOPTYSIS [None]
  - VOMITING [None]
  - RETCHING [None]
  - NAUSEA [None]
  - PRODUCTIVE COUGH [None]
  - TREATMENT NONCOMPLIANCE [None]
  - DECREASED APPETITE [None]
